FAERS Safety Report 23069377 (Version 1)
Quarter: 2023Q4

REPORT INFORMATION
  Report Type: Report from Study
  Country: CA (occurrence: CA)
  Receive Date: 20231016
  Receipt Date: 20231016
  Transmission Date: 20240109
  Serious: Yes (Other)
  Sender: FDA-Public Use
  Company Number: CA-drreddys-CLI/CAN/23/0179308

PATIENT
  Age: 91 Year
  Sex: Female

DRUGS (5)
  1. ZOLEDRONIC [Suspect]
     Active Substance: ZOLEDRONIC ACID
     Indication: Osteoporosis
     Dates: start: 20190905
  2. ZOLEDRONIC [Suspect]
     Active Substance: ZOLEDRONIC ACID
     Dates: start: 20200831
  3. ZOLEDRONIC [Suspect]
     Active Substance: ZOLEDRONIC ACID
     Dates: start: 20210902
  4. ZOLEDRONIC [Suspect]
     Active Substance: ZOLEDRONIC ACID
     Dates: start: 20220929
  5. ZOLEDRONIC [Suspect]
     Active Substance: ZOLEDRONIC ACID
     Dates: start: 20231003

REACTIONS (2)
  - Hip arthroplasty [Recovered/Resolved]
  - Fall [Recovered/Resolved]
